FAERS Safety Report 14898972 (Version 1)
Quarter: 2018Q2

REPORT INFORMATION
  Report Type: Spontaneous
  Country: PT (occurrence: PT)
  Receive Date: 20180515
  Receipt Date: 20180515
  Transmission Date: 20180711
  Serious: Yes (Other)
  Sender: FDA-Public Use
  Company Number: PT-AMGEN-PRTSP2018063824

PATIENT
  Age: 46 Year
  Sex: Female

DRUGS (5)
  1. LETROZOL [Concomitant]
     Active Substance: LETROZOLE
     Indication: INVASIVE BREAST CARCINOMA
     Dosage: UNK
     Dates: start: 201703
  2. PALBOCICLIB [Suspect]
     Active Substance: PALBOCICLIB
     Indication: INVASIVE BREAST CARCINOMA
     Dosage: UNK
     Route: 048
     Dates: start: 201703
  3. XGEVA [Suspect]
     Active Substance: DENOSUMAB
     Dosage: UNK
     Route: 065
     Dates: start: 201703
  4. XGEVA [Suspect]
     Active Substance: DENOSUMAB
     Indication: INVASIVE BREAST CARCINOMA
     Dosage: UNK
     Route: 065
     Dates: start: 201605, end: 201611
  5. GOSERELIN [Concomitant]
     Active Substance: GOSERELIN
     Indication: INVASIVE BREAST CARCINOMA
     Dosage: UNK
     Dates: start: 201703

REACTIONS (4)
  - Neuropathy peripheral [Unknown]
  - Neutropenia [Unknown]
  - Pleural effusion [Unknown]
  - Respiratory tract infection [Unknown]

NARRATIVE: CASE EVENT DATE: 201606
